FAERS Safety Report 19969522 (Version 1)
Quarter: 2021Q4

REPORT INFORMATION
  Report Type: Spontaneous
  Country: US (occurrence: US)
  Receive Date: 20211019
  Receipt Date: 20211019
  Transmission Date: 20220303
  Serious: Yes (Other)
  Sender: FDA-Public Use
  Company Number: US-LUPIN PHARMACEUTICALS INC.-2021-19694

PATIENT
  Age: 30 Year
  Sex: Male

DRUGS (2)
  1. CEVIMELINE [Suspect]
     Active Substance: CEVIMELINE
     Indication: Chronic graft versus host disease
     Dosage: 30 MILLIGRAM, TID (3 TIMES A DAY)
     Route: 065
  2. PILOCARPINE [Concomitant]
     Active Substance: PILOCARPINE
     Indication: Chronic graft versus host disease
     Dosage: 15 MILLIGRAM, TID
     Route: 065

REACTIONS (2)
  - Drug ineffective for unapproved indication [Unknown]
  - Off label use [Unknown]
